FAERS Safety Report 6252595-3 (Version None)
Quarter: 2009Q2

REPORT INFORMATION
  Report Type: 
  Country: None (occurrence: None)
  Receive Date: 20090629
  Receipt Date: 20090612
  Transmission Date: 20091009
  Serious: Yes (Other)
  Sender: FDA-Public Use
  Company Number: 2009-198800-NL

PATIENT
  Age: 16 Year
  Sex: Male

DRUGS (9)
  1. REMERON [Suspect]
     Indication: DEPRESSION
  2. REMERON [Suspect]
     Indication: DEPRESSION
     Dosage: DOSE INCREASED
  3. ALCOHOL [Suspect]
  4. REBIF [Suspect]
     Indication: OFF LABEL USE
     Dosage: 44 UG TW, SUBCUTANEOUS
     Route: 058
     Dates: start: 20081001
  5. KLONOPIN [Suspect]
     Indication: DEPRESSION
  6. ZOLOFT [Suspect]
     Indication: DEPRESSION
  7. CELEXA [Concomitant]
  8. SEROQUEL [Concomitant]
  9. LUNESTA [Concomitant]

REACTIONS (9)
  - ALCOHOL USE [None]
  - ANXIETY [None]
  - DEPRESSION [None]
  - HYPOAESTHESIA [None]
  - INSOMNIA [None]
  - LACERATION [None]
  - OFF LABEL USE [None]
  - OVERDOSE [None]
  - SUICIDE ATTEMPT [None]
